FAERS Safety Report 13186299 (Version 1)
Quarter: 2017Q1

REPORT INFORMATION
  Report Type: Report from Study
  Country: NL (occurrence: NL)
  Receive Date: 20170204
  Receipt Date: 20170204
  Transmission Date: 20170428
  Serious: Yes (Hospitalization, Other)
  Sender: FDA-Public Use
  Company Number: NL-AMGEN-NLDSL2016161010

PATIENT
  Age: 78 Year
  Sex: Male

DRUGS (22)
  1. XGEVA [Suspect]
     Active Substance: DENOSUMAB
     Dosage: 70 MG/ML IN 1.70ML, UNK
     Route: 065
  2. TAXOTERE [Concomitant]
     Active Substance: DOCETAXEL
     Indication: METASTASES TO BONE
  3. XTANDI [Concomitant]
     Active Substance: ENZALUTAMIDE
     Indication: DISEASE PROGRESSION
  4. XGEVA [Suspect]
     Active Substance: DENOSUMAB
     Indication: PROSTATE CANCER METASTATIC
     Dosage: 120 MG, Q3WK
     Route: 058
     Dates: start: 20150226
  5. DEXAMETHASON [Concomitant]
     Active Substance: DEXAMETHASONE
     Dosage: 4 MG, QD
     Dates: start: 20160309
  6. METOCLOPRAMIDE. [Concomitant]
     Active Substance: METOCLOPRAMIDE
     Dosage: 10 MG, UNK
     Dates: start: 20170112
  7. BUDESONIDE W/FORMOTEROL [Concomitant]
     Active Substance: BUDESONIDE\FORMOTEROL
     Dosage: 200/6 MCG, QD
     Dates: start: 20130515
  8. LOPERAMIDE [Concomitant]
     Active Substance: LOPERAMIDE
     Dosage: 2 MG, QD
     Dates: start: 20161113
  9. XTANDI [Concomitant]
     Active Substance: ENZALUTAMIDE
     Indication: PROSTATE CANCER METASTATIC
     Dosage: UNK
     Dates: start: 20150226
  10. XTANDI [Concomitant]
     Active Substance: ENZALUTAMIDE
     Indication: METASTASES TO BONE
  11. DALTEPARINE SODIQUE [Concomitant]
     Dosage: 2500IE=0.2, QD
     Dates: start: 20161113
  12. GOSERELINE [Concomitant]
     Active Substance: GOSERELIN
     Dosage: 10.8 MG, UNK
     Dates: start: 20160928
  13. CALCIUM CARBONATE W/COLECALCIFEROL [Concomitant]
     Active Substance: CALCIUM CARBONATE\CHOLECALCIFEROL
     Dosage: 2.5G/800IE, QD
     Dates: start: 20161027
  14. IRBESARTAN AND HIDROCLOROTIAZIDA [Concomitant]
     Dosage: 150/12.5MG, QD
     Dates: start: 20160413
  15. PANTOPRAZOL PENSA [Concomitant]
     Active Substance: PANTOPRAZOLE SODIUM
     Dosage: 20 MG, QD
     Dates: start: 20161123
  16. BECLOMETASON [Concomitant]
     Active Substance: BECLOMETHASONE DIPROPIONATE
     Dosage: 50 MUG/DO 200DO, QD
  17. CEFTRIAXON [Concomitant]
     Active Substance: CEFTRIAXONE
     Dosage: 2000 MG, QD
     Dates: start: 20170127
  18. TAXOTERE [Concomitant]
     Active Substance: DOCETAXEL
     Indication: PROSTATE CANCER METASTATIC
     Dosage: UNK
     Dates: start: 20160309
  19. OXYCODON [Concomitant]
     Active Substance: OXYCODONE
     Dosage: 5 MG, QD
     Dates: start: 20161123
  20. MACROGOL [Concomitant]
     Active Substance: POLYETHYLENE GLYCOLS
     Dosage: UNK UNK, QD
     Dates: start: 20161123
  21. CABAZITAXEL [Concomitant]
     Active Substance: CABAZITAXEL
     Dosage: 40 MG/ML IN 1.5ML, UNK
     Dates: start: 20170112
  22. PARACETAMOL [Concomitant]
     Active Substance: ACETAMINOPHEN
     Dosage: 500 MG, QID
     Dates: start: 20161114

REACTIONS (6)
  - Normochromic normocytic anaemia [Unknown]
  - Hepatic function abnormal [Unknown]
  - Malaise [Unknown]
  - Renal impairment [Unknown]
  - Diarrhoea [Unknown]
  - Haemoglobin decreased [Unknown]

NARRATIVE: CASE EVENT DATE: 20161123
